FAERS Safety Report 9272352 (Version 1)
Quarter: 2013Q2

REPORT INFORMATION
  Report Type: Spontaneous
  Country: US (occurrence: US)
  Receive Date: 20130506
  Receipt Date: 20130506
  Transmission Date: 20140414
  Serious: No
  Sender: FDA-Public Use
  Company Number: US-ASTRAZENECA-2012SE90902

PATIENT
  Age: 19893 Day
  Sex: Female

DRUGS (3)
  1. PRILOSEC [Suspect]
     Indication: DYSPEPSIA
     Route: 048
     Dates: start: 20121126, end: 20121126
  2. ATENOLOL [Concomitant]
     Dosage: UNKNOWN
  3. AMITRIPTYLINE [Concomitant]
     Dosage: UNKNOWN

REACTIONS (3)
  - Abdominal discomfort [Unknown]
  - Dyspepsia [Unknown]
  - Drug ineffective [Unknown]
